FAERS Safety Report 14184513 (Version 1)
Quarter: 2017Q4

REPORT INFORMATION
  Report Type: Spontaneous
  Country: CA (occurrence: CA)
  Receive Date: 20171113
  Receipt Date: 20171113
  Transmission Date: 20180321
  Serious: Yes (Life-Threatening)
  Sender: FDA-Public Use
  Company Number: CA-PFIZER INC-2017480156

PATIENT
  Age: 16 Year
  Sex: Male

DRUGS (7)
  1. MIDAZOLAM [Suspect]
     Active Substance: MIDAZOLAM HYDROCHLORIDE
     Indication: SEDATION
     Dosage: UNK
     Route: 042
  2. ADENOSINE. [Concomitant]
     Active Substance: ADENOSINE
     Indication: SUPRAVENTRICULAR TACHYCARDIA
     Dosage: 6 MG, UNK
     Route: 042
  3. NORMAL SALINE [Concomitant]
     Active Substance: SODIUM CHLORIDE
     Dosage: 1 L, UNK (BOLUS OF ONE LITER)
  4. FENTANYL CITRATE. [Suspect]
     Active Substance: FENTANYL CITRATE
     Indication: SEDATION
     Dosage: UNK
     Route: 042
  5. ADENOSINE. [Concomitant]
     Active Substance: ADENOSINE
     Dosage: 12 MG, UNK
     Route: 042
  6. ESMOLOL [Concomitant]
     Active Substance: ESMOLOL HYDROCHLORIDE
     Indication: SUPRAVENTRICULAR TACHYCARDIA
     Dosage: 150 MCG/KG PER MINUTE
  7. ADENOSINE. [Concomitant]
     Active Substance: ADENOSINE
     Dosage: 12 MG, UNK
     Route: 042

REACTIONS (1)
  - Bezold-Jarisch reflex [Recovered/Resolved]
